FAERS Safety Report 11144610 (Version 2)
Quarter: 2015Q2

REPORT INFORMATION
  Report Type: Report from Study
  Country: GB (occurrence: GB)
  Receive Date: 20150526
  Receipt Date: 20150616
  Transmission Date: 20150821
  Serious: Yes (Death)
  Sender: FDA-Public Use
  Company Number: GB-CELGENE-GBR-2015053550

PATIENT
  Age: 67 Year
  Sex: Female

DRUGS (10)
  1. ONDANSETRON [Concomitant]
     Active Substance: ONDANSETRON
     Indication: NAUSEA
     Route: 048
     Dates: start: 20130916
  2. AZACITIDINE INJECTABLE [Suspect]
     Active Substance: AZACITIDINE
     Indication: ACUTE MYELOID LEUKAEMIA
     Route: 065
     Dates: start: 20130916, end: 20130919
  3. LEVOFLOXACIN. [Concomitant]
     Active Substance: LEVOFLOXACIN
     Indication: ANTIBIOTIC THERAPY
     Dosage: 2 GRAM
     Route: 048
     Dates: start: 20130913
  4. VORINOSTAT [Suspect]
     Active Substance: VORINOSTAT
     Indication: ACUTE MYELOID LEUKAEMIA
     Route: 065
     Dates: start: 20130916, end: 20130919
  5. TRAZODONC [Concomitant]
     Indication: INSOMNIA
     Route: 048
     Dates: start: 2003
  6. METOCLOPRAMIDE. [Concomitant]
     Active Substance: METOCLOPRAMIDE
     Indication: INSOMNIA
     Dosage: 13.5 MILLIGRAM
     Route: 048
     Dates: start: 20130913
  7. ITRACONAZOLE. [Concomitant]
     Active Substance: ITRACONAZOLE
     Indication: ANTIFUNGAL TREATMENT
     Dosage: 16 MILLIGRAM
     Route: 048
     Dates: start: 20130913
  8. HYDROXYCARBAMIDE [Concomitant]
     Active Substance: HYDROXYUREA
     Indication: WHITE BLOOD CELL COUNT INCREASED
     Dosage: 300 MILLIGRAM
     Route: 048
     Dates: start: 20130913
  9. DIAZAPAM [Concomitant]
     Indication: ANXIETY
     Dosage: 7.2 GRAM
     Route: 048
     Dates: start: 201303
  10. ACICLOVIR [Concomitant]
     Active Substance: ACYCLOVIR
     Indication: ANTIVIRAL PROPHYLAXIS
     Dosage: 3 GRAM
     Route: 048
     Dates: start: 20130913

REACTIONS (2)
  - Neutrophil count decreased [Fatal]
  - Pneumocystis jirovecii pneumonia [Fatal]

NARRATIVE: CASE EVENT DATE: 20130919
